FAERS Safety Report 4402823-1 (Version None)
Quarter: 2004Q3

REPORT INFORMATION
  Report Type: 
  Country: None (occurrence: None)
  Receive Date: 20040720
  Receipt Date: 20040720
  Transmission Date: 20050211
  Serious: Yes (Hospitalization)
  Sender: FDA-Public Use
  Company Number: None

PATIENT
  Age: 49 Year
  Sex: Female

DRUGS (4)
  1. CEFTRIAXONE [Suspect]
     Indication: EXTRADURAL ABSCESS
     Dosage: 2 GM/DAY
     Dates: start: 20040330, end: 20040412
  2. SYNTHROID [Concomitant]
  3. PHENERGAN [Concomitant]
  4. VANCOMYCIN [Concomitant]

REACTIONS (5)
  - HAEMOLYSIS [None]
  - HEADACHE [None]
  - PHARYNGOLARYNGEAL PAIN [None]
  - PRURITUS [None]
  - UPPER RESPIRATORY TRACT INFECTION [None]
